FAERS Safety Report 7735122 (Version 4)
Quarter: 2013Q4

REPORT INFORMATION
  Report Type: Spontaneous
  Country: US (occurrence: US)
  Receive Date: 20101223
  Receipt Date: 20131211
  Transmission Date: 20140711
  Serious: Yes (Hospitalization, Other)
  Sender: FDA-Public Use
  Company Number: US-BAYER-2010-004389

PATIENT
  Age: 32 Year
  Sex: Female
  Weight: 86.17 kg

DRUGS (11)
  1. YASMIN [Suspect]
     Indication: ACNE
     Dosage: UNK
     Route: 048
     Dates: start: 20011117, end: 20031216
  2. ZANTAC [Concomitant]
     Dosage: 150 MG, UNK
  3. ZOLOFT [Concomitant]
     Dosage: 50 MG, QD
     Route: 048
  4. PREVACID [Concomitant]
     Dosage: 30 MG, QD
     Route: 048
     Dates: start: 2003
  5. HYDROXYZINE [Concomitant]
     Dosage: 25 MG, UNK
     Dates: start: 2003
  6. CLARINEX [DESLORATADINE] [Concomitant]
     Dosage: 5 MG, UNK
     Route: 048
     Dates: start: 2003
  7. NASONEX [Concomitant]
     Dosage: UNK UNK, HS
     Route: 045
     Dates: start: 2003
  8. IBUPROFEN [Concomitant]
     Dosage: 800 MG, PRN
     Route: 048
  9. CIPRO [Concomitant]
     Dosage: 500 MG, QD
  10. DIFLUCAN [Concomitant]
     Indication: INFECTION
     Dosage: 150 MG, UNK
  11. SPECTAZOLE [Concomitant]
     Dosage: 1 %, UNK

REACTIONS (11)
  - Gallbladder disorder [None]
  - Pain [None]
  - Cholecystitis chronic [None]
  - Gastrointestinal disorder [None]
  - Nervousness [None]
  - Weight increased [None]
  - Alopecia [None]
  - Hiatus hernia [None]
  - Gastrooesophageal reflux disease [None]
  - Hypertension [None]
  - Blood cholesterol increased [None]
